FAERS Safety Report 6899914-2 (Version None)
Quarter: 2010Q3

REPORT INFORMATION
  Report Type: 
  Country: None (occurrence: None)
  Receive Date: 20100803
  Receipt Date: 20100723
  Transmission Date: 20110219
  Serious: Yes (Hospitalization, Other)
  Sender: FDA-Public Use
  Company Number: DE-BRISTOL-MYERS SQUIBB COMPANY-15070865

PATIENT
  Age: 52 Year
  Sex: Male

DRUGS (2)
  1. BARACLUDE [Suspect]
     Indication: HEPATITIS B
     Route: 048
  2. SPIRONOLACTONE [Concomitant]
     Route: 048

REACTIONS (2)
  - EPILEPSY [None]
  - THROMBOCYTOPENIA [None]
